FAERS Safety Report 11329559 (Version 1)
Quarter: 2015Q3

REPORT INFORMATION
  Report Type: Spontaneous
  Country: ES (occurrence: None)
  Receive Date: 20150730
  Receipt Date: 20150730
  Transmission Date: 20151125
  Serious: Yes (Hospitalization)
  Sender: FDA-Public Use
  Company Number: CC400264894

PATIENT
  Age: 49 Year
  Sex: Male

DRUGS (4)
  1. AZATIOPHRINE [Concomitant]
  2. METRONIDAZOLE. [Suspect]
     Active Substance: METRONIDAZOLE
     Indication: ABDOMINAL ABSCESS
     Route: 042
  3. WARFARIN [Concomitant]
     Active Substance: WARFARIN
  4. PIPERACILLIN/TAZOBACTAM [Concomitant]
     Active Substance: PIPERACILLIN SODIUM\TAZOBACTAM SODIUM

REACTIONS (6)
  - Shock [None]
  - Retroperitoneal haematoma [None]
  - Haemoglobin decreased [None]
  - Hypotension [None]
  - Muscle rupture [None]
  - Tachycardia [None]
